FAERS Safety Report 24036831 (Version 2)
Quarter: 2024Q3

REPORT INFORMATION
  Report Type: Spontaneous
  Country: US (occurrence: US)
  Receive Date: 20240701
  Receipt Date: 20240715
  Transmission Date: 20241016
  Serious: Yes (Hospitalization)
  Sender: PFIZER
  Company Number: US-PFIZER INC-202300291399

PATIENT
  Age: 18 Year
  Sex: Male

DRUGS (5)
  1. OXBRYTA [Suspect]
     Active Substance: VOXELOTOR
     Dosage: 3 TABLETS EVERY DAY
     Route: 048
  2. OXBRYTA [Suspect]
     Active Substance: VOXELOTOR
     Dosage: 1 TABLET EVERY OTHER DAY
     Route: 048
  3. OXBRYTA [Suspect]
     Active Substance: VOXELOTOR
     Dosage: TAKE 3 TABLETS BY MOUTH ONCE DAILY
     Route: 048
     Dates: start: 20230117
  4. OXBRYTA [Suspect]
     Active Substance: VOXELOTOR
     Dosage: TAKE 3 TABS BY MOUTH ONCE DAILY
     Route: 048
     Dates: start: 20240111
  5. OXBRYTA [Suspect]
     Active Substance: VOXELOTOR
     Dosage: 1 TABLET BY MOUTH EVERY OTHER DAY
     Route: 048

REACTIONS (2)
  - Pain [Unknown]
  - Off label use [Unknown]
